FAERS Safety Report 23150320 (Version 1)
Quarter: 2023Q4

REPORT INFORMATION
  Report Type: Spontaneous
  Country: TW (occurrence: TW)
  Receive Date: 20231106
  Receipt Date: 20231106
  Transmission Date: 20240109
  Serious: Yes (Death, Other)
  Sender: FDA-Public Use
  Company Number: TW-NAPPMUNDI-GBR-2023-0112005

PATIENT
  Age: 85 Year
  Sex: Female

DRUGS (2)
  1. THEOPHYLLINE [Suspect]
     Active Substance: THEOPHYLLINE
     Indication: Dyspnoea
     Dosage: 200MG 1TAB ONCE DAILY
     Route: 065
     Dates: start: 20200725
  2. COMBIVENT [Suspect]
     Active Substance: ALBUTEROL SULFATE\IPRATROPIUM BROMIDE
     Indication: Dyspnoea
     Dosage: 2.5ML  WITH NORMAL SALINE 4ML VAPOR INHALATION FOUR TIMES A DAY
     Dates: start: 20200725

REACTIONS (6)
  - Pneumonia [Fatal]
  - Pulmonary oedema [Fatal]
  - Somnolence [Fatal]
  - Coma [Fatal]
  - Death [Fatal]
  - Drug ineffective [Fatal]

NARRATIVE: CASE EVENT DATE: 20200731
